FAERS Safety Report 17285203 (Version 5)
Quarter: 2020Q2

REPORT INFORMATION
  Report Type: Report from Study
  Country: DE (occurrence: DE)
  Receive Date: 20200117
  Receipt Date: 20200529
  Transmission Date: 20200713
  Serious: Yes (Death, Life-Threatening, Hospitalization, Other)
  Sender: FDA-Public Use
  Company Number: DE-BRISTOL-MYERS SQUIBB COMPANY-BMS-2019-124872

PATIENT
  Age: 63 Year
  Sex: Female
  Weight: 99 kg

DRUGS (10)
  1. NIVOLUMAB [Suspect]
     Active Substance: NIVOLUMAB
     Indication: ADENOCARCINOMA GASTRIC
     Dosage: 240 MILLIGRAM
     Route: 042
     Dates: start: 20191218, end: 20191218
  2. 5-FLUOROURACIL [Suspect]
     Active Substance: FLUOROURACIL
     Indication: ADENOCARCINOMA
     Dosage: 5740 MILLIGRAM
     Route: 042
     Dates: start: 20191218, end: 20191220
  3. TRASTUZUMAB. [Suspect]
     Active Substance: TRASTUZUMAB
     Indication: ADENOCARCINOMA
     Dosage: 594 MILLIGRAM
     Route: 042
     Dates: start: 20191218, end: 20191218
  4. DEXAMETHASONE. [Concomitant]
     Active Substance: DEXAMETHASONE
     Indication: PROPHYLAXIS OF NAUSEA AND VOMITING
     Dosage: 4 MILLIGRAM, DAY 1
     Route: 042
     Dates: start: 20191218, end: 20191220
  5. DEXAMETHASONE. [Concomitant]
     Active Substance: DEXAMETHASONE
     Indication: PRODUCT USED FOR UNKNOWN INDICATION
     Dosage: 4 MILLIGRAM, DAY 2 AND 3
     Route: 048
  6. GRANISETRON [Concomitant]
     Active Substance: GRANISETRON
     Indication: PROPHYLAXIS OF NAUSEA AND VOMITING
     Dosage: 3 MILLIGRAM
     Route: 042
     Dates: start: 20191218, end: 20191218
  7. LEUCOVORIN CALCIUM. [Suspect]
     Active Substance: LEUCOVORIN CALCIUM
     Indication: ADENOCARCINOMA
     Dosage: 820 MILLIGRAM
     Route: 042
     Dates: start: 20191218, end: 20191218
  8. METOCLOPRAMIDE. [Concomitant]
     Active Substance: METOCLOPRAMIDE
     Indication: PROPHYLAXIS OF NAUSEA AND VOMITING
     Dosage: 10 MILLIGRAM
     Route: 048
     Dates: start: 20191221, end: 20200108
  9. OXALIPLATIN. [Suspect]
     Active Substance: OXALIPLATIN
     Indication: ADENOCARCINOMA
     Dosage: 174.25 MILLIGRAM
     Route: 042
     Dates: start: 20191218, end: 20191218
  10. DIMETINDEN [Concomitant]
     Active Substance: DIMETHINDENE
     Indication: ALLERGY PROPHYLAXIS
     Dosage: 4 MILLIGRAM
     Route: 042
     Dates: start: 20191218, end: 20191218

REACTIONS (3)
  - Metastases to liver [Unknown]
  - Tumour lysis syndrome [Fatal]
  - Hepatic failure [Fatal]

NARRATIVE: CASE EVENT DATE: 20191224
